FAERS Safety Report 6691895-X (Version None)
Quarter: 2010Q2

REPORT INFORMATION
  Report Type: 
  Country: None (occurrence: None)
  Receive Date: 20100422
  Receipt Date: 20090616
  Transmission Date: 20101027
  Serious: No
  Sender: FDA-Public Use
  Company Number: US-ASTRAZENECA-2009UW15416

PATIENT
  Age: 67 Year
  Sex: Male

DRUGS (13)
  1. METOPROLOL SUCCINATE [Suspect]
     Route: 048
     Dates: start: 20070601
  2. METOPROLOL SUCCINATE [Suspect]
     Route: 048
     Dates: start: 20080101
  3. METOPROLOL SUCCINATE [Suspect]
     Route: 048
     Dates: start: 20080301
  4. METOPROLOL SUCCINATE [Suspect]
     Route: 048
     Dates: start: 20081001
  5. PROZAC [Concomitant]
  6. EFFEXOR [Concomitant]
  7. XANAX [Concomitant]
  8. MEVACOR [Concomitant]
  9. LOPID [Concomitant]
  10. FINASTERIDE [Concomitant]
  11. ULTRAM [Concomitant]
  12. FIORICET [Concomitant]
  13. SYNTHROID [Concomitant]

REACTIONS (5)
  - BLOOD PRESSURE FLUCTUATION [None]
  - BLOOD PRESSURE INCREASED [None]
  - DYSPNOEA [None]
  - EXTRASYSTOLES [None]
  - EYE PAIN [None]
